FAERS Safety Report 9387921 (Version 2)
Quarter: 2013Q3

REPORT INFORMATION
  Report Type: Spontaneous
  Country: JP (occurrence: JP)
  Receive Date: 20130708
  Receipt Date: 20130725
  Transmission Date: 20140515
  Serious: No
  Sender: FDA-Public Use
  Company Number: PHHY2013JP071337

PATIENT
  Age: 56 Year
  Sex: Female

DRUGS (4)
  1. FAMVIR [Suspect]
     Indication: HERPES ZOSTER
     Dosage: 500 MG, BID
     Route: 048
     Dates: start: 20130611, end: 20130612
  2. MYSLEE [Concomitant]
     Dosage: 5 MG, UNK
     Route: 048
  3. SENNARIDE [Concomitant]
     Dosage: 36 MG, UNK
     Route: 048
  4. SG [Concomitant]
     Dosage: 1 G, UNK
     Route: 048
     Dates: start: 20130612, end: 20130612

REACTIONS (2)
  - Convulsion [Recovered/Resolved]
  - Altered state of consciousness [Unknown]
